FAERS Safety Report 7960099-2 (Version None)
Quarter: 2011Q4

REPORT INFORMATION
  Report Type: 
  Country: None (occurrence: None)
  Receive Date: 20111206
  Receipt Date: 20111201
  Transmission Date: 20120403
  Serious: Yes (Hospitalization)
  Sender: FDA-Public Use
  Company Number: FR-ABBOTT-11P-056-0880499-00

PATIENT
  Sex: Female
  Weight: 27 kg

DRUGS (1)
  1. ENANTONE LP 11.25 MG [Suspect]
     Indication: PRECOCIOUS PUBERTY
     Route: 050
     Dates: start: 20110301, end: 20110601

REACTIONS (4)
  - DYSTONIA [None]
  - AFFECTIVE DISORDER [None]
  - HICCUPS [None]
  - MUSCLE TWITCHING [None]
